FAERS Safety Report 19598297 (Version 1)
Quarter: 2021Q3

REPORT INFORMATION
  Report Type: Spontaneous
  Country: US (occurrence: US)
  Receive Date: 20210722
  Receipt Date: 20210722
  Transmission Date: 20211014
  Serious: No
  Sender: FDA-Public Use
  Company Number: None

PATIENT
  Age: 71 Year
  Sex: Male
  Weight: 67.13 kg

DRUGS (1)
  1. ALOGLIPTIN (ALOGLIPTIN 12.5MG TAB) [Suspect]
     Active Substance: ALOGLIPTIN
     Route: 048
     Dates: start: 20191210, end: 20210521

REACTIONS (2)
  - Pancreatitis [None]
  - Dehydration [None]

NARRATIVE: CASE EVENT DATE: 20210519
